FAERS Safety Report 6447850-8 (Version None)
Quarter: 2009Q4

REPORT INFORMATION
  Report Type: 
  Country: None (occurrence: None)
  Receive Date: 20091120
  Receipt Date: 20091108
  Transmission Date: 20100525
  Serious: Yes (Other)
  Sender: FDA-Public Use
  Company Number: US-JNJFOC-20091103547

PATIENT
  Sex: Female
  Weight: 49.9 kg

DRUGS (2)
  1. TYLENOL SINUS CONGESTION + PAIN DAYTIME RAPID RELEASE [Suspect]
     Indication: MULTIPLE ALLERGIES
  2. PLAQUENIL [Concomitant]
     Indication: SYSTEMIC LUPUS ERYTHEMATOSUS

REACTIONS (8)
  - COLD SWEAT [None]
  - DIZZINESS [None]
  - EXPIRED DRUG ADMINISTERED [None]
  - HEADACHE [None]
  - LOSS OF CONSCIOUSNESS [None]
  - NAUSEA [None]
  - PRODUCT CONTAMINATION [None]
  - PYREXIA [None]
